FAERS Safety Report 9399961 (Version 1)
Quarter: 2013Q3

REPORT INFORMATION
  Report Type: Spontaneous
  Country: GB (occurrence: GB)
  Receive Date: 20130715
  Receipt Date: 20130715
  Transmission Date: 20140515
  Serious: Yes (Disabling, Other)
  Sender: FDA-Public Use
  Company Number: GB-PFIZER INC-2013205632

PATIENT
  Age: 42 Year
  Sex: Female
  Weight: 124 kg

DRUGS (28)
  1. PREGABALIN [Suspect]
     Indication: PAIN
     Dosage: 25 MG, 2X/DAY
     Route: 048
     Dates: start: 201010
  2. PREGABALIN [Suspect]
     Dosage: INCRASING AFTER 1 WEEK TO FOUR CAPSULES
     Route: 048
  3. PREGABALIN [Suspect]
     Dosage: 75 MG, 2X/DAY
     Route: 048
     Dates: start: 20120515
  4. PREGABALIN [Suspect]
     Dosage: 150 MG, 2X/DAY
     Route: 048
     Dates: start: 20120924, end: 201210
  5. PREGABALIN [Suspect]
     Dosage: 300 MG, 2X/DAY
     Route: 048
     Dates: start: 201210, end: 20130625
  6. CLOBETASOL [Concomitant]
     Dosage: 1 DOSE FORM (DF) AT NIGHT ON ALTERNATE DAYS
  7. AQUEOUS CREAM [Concomitant]
     Dosage: USE AS A SOAP SUBSTITUTE
  8. AMITRIPTYLINE [Concomitant]
     Dosage: 25MG/5ML. 2.5MG AT NIGHT INCREASING EVERY 3 DAYS BY 2.5MG UP TO 15MLS AT NIGHT
  9. E45 [Concomitant]
     Dosage: AS REQUIRED
  10. DOMPERIDONE [Concomitant]
     Dosage: 10ML THREE TIMES DAILY (5MG/5ML)
  11. SOLIFENACIN [Concomitant]
     Dosage: 5 MG, 1X/DAY
  12. LACTULOSE [Concomitant]
     Dosage: 12ML TWICE DAILY (3.1-3.7G/5ML)
  13. PRO D3 [Concomitant]
     Dosage: 20000 IU, ALTERNATE DAY
  14. CLOTRIMAZOLE [Concomitant]
     Dosage: 5G AT NIGHT
  15. CITALOPRAM [Concomitant]
     Dosage: 6DF ONCE DAILY (40MG/ML)
  16. SODIUM ALGINATE [Concomitant]
     Dosage: AS REQUIRED 500MG/5ML
  17. POTASSIUM BICARBONATE [Concomitant]
     Dosage: AS REQUIRED
  18. OMEPRAZOLE [Concomitant]
     Dosage: 20 MG, 1X/DAY
  19. CALCIUM W/COLECALCIFEROL [Concomitant]
     Dosage: 1.5 G, 2X/DAY
  20. ELOCON [Concomitant]
     Dosage: 1 DF, 1X/DAY
  21. FLUTICASONE PROPIONATE [Concomitant]
     Dosage: UNK
  22. AZELASTINE [Concomitant]
     Dosage: 1DF AS REQUIRED
  23. CETIRIZINE [Concomitant]
     Dosage: 10 MG, 1X/DAY
  24. CAPSAICIN [Concomitant]
     Dosage: 1 DF, 3X/DAY
  25. NAPROXEN [Concomitant]
     Dosage: 500 MG, 2X/DAY
  26. TRAMADOL [Concomitant]
     Dosage: 1-2 CAPSULES, FOUR TIMES DAILY
  27. PARACETAMOL [Concomitant]
     Dosage: AT 100MG FOUR TIMES DAILY AS REQUIRED
  28. OILATUM 1 [Concomitant]
     Dosage: 1 DF, 1X/DAY

REACTIONS (2)
  - Tunnel vision [Not Recovered/Not Resolved]
  - Blindness [Not Recovered/Not Resolved]
